FAERS Safety Report 8163699-2 (Version None)
Quarter: 2012Q1

REPORT INFORMATION
  Report Type: 
  Country: None (occurrence: None)
  Receive Date: 20120224
  Receipt Date: 20120213
  Transmission Date: 20120608
  Serious: Yes (Other)
  Sender: FDA-Public Use
  Company Number: PHHY2012DE008378

PATIENT
  Weight: 98 kg

DRUGS (14)
  1. ACTRAPID [Concomitant]
     Indication: DIABETES MELLITUS
     Dosage: 20 IU, PER DAY
     Route: 058
     Dates: start: 20111125
  2. ANGIOTENSIN CONVERTING ENZYME BLOCKERS [Concomitant]
     Dates: end: 20100628
  3. RASILEZ HCT [Suspect]
     Indication: HYPERTENSION
     Dosage: 1 DF, PER DAY
     Route: 048
     Dates: start: 20081208, end: 20110616
  4. METOPROLOL SUCCINATE [Concomitant]
     Indication: HYPERTENSION
     Dosage: 47.5 MG, PER DAY
     Route: 048
     Dates: start: 20111205
  5. CALCIUM CHANNEL BLOCKERS [Concomitant]
     Dates: end: 20110616
  6. EXFORGE HCT [Suspect]
     Indication: HYPERTENSION
     Dosage: 1 DF, PER DAY
     Route: 048
  7. DIURETICS [Concomitant]
  8. NEPRESOL [Concomitant]
     Indication: HYPERTENSION
     Dosage: 75 MG, PER DAY
     Route: 048
     Dates: start: 20100121
  9. METFORMIN HCL [Concomitant]
     Indication: DIABETES MELLITUS
     Dosage: 1700 MG, PER DAY
     Route: 048
     Dates: start: 20021008
  10. LANTUS [Concomitant]
     Indication: DIABETES MELLITUS
     Dosage: 30 IU, PER DAY
     Route: 058
     Dates: start: 20040705
  11. VASODILATORS USED IN CARDIAC DISEASES [Concomitant]
  12. STATINS [Concomitant]
  13. ASPIRIN [Concomitant]
     Indication: ARTERIOSCLEROSIS
     Dosage: 100 MG, PER DAY
     Route: 048
     Dates: start: 20021008
  14. PLATELET AGGREGATION INHIBITORS [Concomitant]

REACTIONS (3)
  - ELECTROCARDIOGRAM QT PROLONGED [None]
  - ELECTROCARDIOGRAM QRS COMPLEX PROLONGED [None]
  - BLOOD TRIGLYCERIDES INCREASED [None]
